FAERS Safety Report 9934783 (Version 2)
Quarter: 2014Q1

REPORT INFORMATION
  Report Type: Spontaneous
  Country: US (occurrence: US)
  Receive Date: 20140228
  Receipt Date: 20140324
  Transmission Date: 20141002
  Serious: Yes (Life-Threatening, Hospitalization, Other)
  Sender: FDA-Public Use
  Company Number: US-GLAXOSMITHKLINE-A1062113A

PATIENT
  Age: 77 Year
  Sex: Female

DRUGS (7)
  1. PROMACTA [Suspect]
     Indication: IMMUNE THROMBOCYTOPENIC PURPURA
     Dosage: 25MG PER DAY
     Route: 048
     Dates: start: 20120802
  2. ROPINIROLE [Concomitant]
  3. BISOPROLOL [Concomitant]
  4. LEVOTHYROXINE [Concomitant]
  5. LISINOPRIL [Concomitant]
  6. LORTAB [Concomitant]
  7. FENTANYL [Concomitant]

REACTIONS (1)
  - Cerebrovascular accident [Recovering/Resolving]
